FAERS Safety Report 4845198-6 (Version None)
Quarter: 2005Q4

REPORT INFORMATION
  Report Type: 
  Country: None (occurrence: None)
  Receive Date: 20051129
  Receipt Date: 20051121
  Transmission Date: 20060501
  Serious: Yes (Hospitalization)
  Sender: FDA-Public Use
  Company Number: 05-059

PATIENT
  Sex: Male

DRUGS (2)
  1. XODOL (HYDROCODONE BITARTRATE AND ACETAMINOPHEN TABLETS USP) 10/300MG [Suspect]
     Indication: TOOTHACHE
     Dosage: 1/2 - 1 TABLET EVERY 6 HR
     Dates: start: 20051110, end: 20051112
  2. IBUPROFEN [Concomitant]

REACTIONS (1)
  - ILEUS PARALYTIC [None]
